FAERS Safety Report 25602546 (Version 1)
Quarter: 2025Q3

REPORT INFORMATION
  Report Type: Spontaneous
  Country: GB (occurrence: GB)
  Receive Date: 20250724
  Receipt Date: 20250724
  Transmission Date: 20251020
  Serious: Yes (Other)
  Sender: TEVA
  Company Number: GB-MHRA-TPP7221542C11543552YC1752751938094

PATIENT
  Age: 81 Year
  Sex: Male
  Weight: 100 kg

DRUGS (26)
  1. TRIMETHOPRIM [Suspect]
     Active Substance: TRIMETHOPRIM
     Indication: Ill-defined disorder
     Route: 065
     Dates: start: 20250428, end: 20250505
  2. DORZOLAMIDE [Concomitant]
     Active Substance: DORZOLAMIDE
     Indication: Ill-defined disorder
     Dosage: ONE DROP TWICE DAILY AS DIRECTED, 2 DROPS DAILY
     Dates: start: 20250321
  3. ATORVASTATIN [Concomitant]
     Active Substance: ATORVASTATIN
     Indication: Ill-defined disorder
     Dosage: TAKE ONE DAILY
     Dates: start: 20250321
  4. BISOPROLOL [Concomitant]
     Active Substance: BISOPROLOL
     Indication: Ill-defined disorder
     Dosage: TAKE ONE DAILY
     Dates: start: 20250321
  5. LOSARTAN [Concomitant]
     Active Substance: LOSARTAN
     Indication: Ill-defined disorder
     Dosage: TAKE ONE DAILY, DURATION: 74 DAYS
     Dates: start: 20250321, end: 20250602
  6. FEXOFENADINE [Concomitant]
     Active Substance: FEXOFENADINE HYDROCHLORIDE
     Indication: Ill-defined disorder
     Dosage: TAKE ONE DAILY (CONSIDER OTC ) (URGENT)
     Dates: start: 20250506
  7. BENDROFLUMETHIAZIDE [Concomitant]
     Active Substance: BENDROFLUMETHIAZIDE
     Indication: Ill-defined disorder
     Dosage: 1 EVERY MORNING, 1 DOSAGE FORMS DAILY
     Dates: start: 20240227
  8. OMEPRAZOLE [Concomitant]
     Active Substance: OMEPRAZOLE
     Indication: Ill-defined disorder
     Dosage: 1 TABLET TWICE A DAY, 2 DOSAGE FORMS DAILY
     Dates: start: 20250321
  9. NITROGLYCERIN [Concomitant]
     Active Substance: NITROGLYCERIN
     Indication: Ill-defined disorder
     Dates: start: 20230703
  10. SPIRONOLACTONE [Concomitant]
     Active Substance: SPIRONOLACTONE
     Indication: Ill-defined disorder
     Dosage: ONE DAILY
     Dates: start: 20250602
  11. PREDNISOLONE [Concomitant]
     Active Substance: PREDNISOLONE
     Indication: Ill-defined disorder
     Dosage: 8 TABLETS ONCE DAILY FOR 5 DAYS (URGENT), 8 DOSAGE FORMS DAILY, DURATION: 6 DAYS
     Dates: start: 20250508, end: 20250513
  12. ASPIRIN [Concomitant]
     Active Substance: ASPIRIN
     Indication: Ill-defined disorder
     Dosage: TAKE ONE DAILY
     Dates: start: 20250321
  13. UMECLIDINIUM BROMIDE\VILANTEROL TRIFENATATE [Concomitant]
     Active Substance: UMECLIDINIUM BROMIDE\VILANTEROL TRIFENATATE
     Indication: Ill-defined disorder
     Dosage: INHALE 1 DOSE DAILY, PATIENT ROA : RESPIRATORY (INHALATION),1 DOSAGE FORMS DAILY, DURATION: 9 DAYS
     Dates: start: 20250428, end: 20250506
  14. ISOSORBIDE MONONITRATE [Concomitant]
     Active Substance: ISOSORBIDE MONONITRATE
     Indication: Ill-defined disorder
     Dosage: 1/2 TAB EACH DAY, 0.5 DOSAGE FORMS DAILY
     Dates: start: 20250321
  15. AMLODIPINE [Concomitant]
     Active Substance: AMLODIPINE BESYLATE
     Indication: Ill-defined disorder
     Dosage: TAKE ONE DAILY
     Dates: start: 20250321
  16. CLOBETASONE BUTYRATE [Concomitant]
     Active Substance: CLOBETASONE BUTYRATE
     Indication: Ill-defined disorder
     Dates: start: 20250506, end: 20250513
  17. FENBID [Concomitant]
     Indication: Ill-defined disorder
     Dates: start: 20250321
  18. GLUCAGON [Concomitant]
     Active Substance: GLUCAGON
     Indication: Ill-defined disorder
     Dates: start: 20240227
  19. ALBUTEROL [Concomitant]
     Active Substance: ALBUTEROL
     Indication: Ill-defined disorder
     Dates: start: 20250429
  20. CEPHALEXIN [Concomitant]
     Active Substance: CEPHALEXIN
     Indication: Ill-defined disorder
     Dates: start: 20250704, end: 20250711
  21. LANTUS [Concomitant]
     Active Substance: INSULIN GLARGINE
     Indication: Ill-defined disorder
     Dates: start: 20250321
  22. FUROSEMIDE [Concomitant]
     Active Substance: FUROSEMIDE
     Indication: Ill-defined disorder
     Dosage: TAKE TWO EACH MORNING, 2 DOSAGE FORMS DAILY., DURATION: 60 DAYS
     Dates: start: 20250321, end: 20250519
  23. OLODATEROL HYDROCHLORIDE\TIOTROPIUM BROMIDE MONOHYDRATE [Concomitant]
     Active Substance: OLODATEROL HYDROCHLORIDE\TIOTROPIUM BROMIDE MONOHYDRATE
     Indication: Ill-defined disorder
     Dosage: TWO PUFFS ONCE DAILY (CHECK FULL PACK REQUIRED), 2 DOSAGE FORMS DAILY
     Dates: start: 20250506
  24. PREGABALIN [Concomitant]
     Active Substance: PREGABALIN
     Indication: Ill-defined disorder
     Dates: start: 20250313
  25. LATANOPROST [Concomitant]
     Active Substance: LATANOPROST
     Indication: Ill-defined disorder
     Dosage: ONE DROP ONCE DAILY, 1 DROPS DAILY
     Dates: start: 20250321
  26. NOVORAPID [Concomitant]
     Active Substance: INSULIN ASPART
     Indication: Ill-defined disorder
     Dates: start: 20250321

REACTIONS (2)
  - Swelling face [Recovered/Resolved]
  - Blister [Unknown]
